FAERS Safety Report 11193735 (Version 4)
Quarter: 2015Q3

REPORT INFORMATION
  Report Type: Spontaneous
  Country: US (occurrence: US)
  Receive Date: 20150616
  Receipt Date: 20150917
  Transmission Date: 20151125
  Serious: No
  Sender: FDA-Public Use
  Company Number: US-PFIZER INC-2015198922

PATIENT
  Age: 60 Year
  Sex: Female
  Weight: 54 kg

DRUGS (2)
  1. XALATAN [Suspect]
     Active Substance: LATANOPROST
     Indication: GLAUCOMA
     Dosage: 1 DROP PER EYEM ONCE A DAY (EVERY NIGHT)
     Route: 047
     Dates: start: 1995
  2. LATANOPROST. [Suspect]
     Active Substance: LATANOPROST
     Indication: GLAUCOMA
     Dosage: 1 DROP EACH EYE EVERY NIGHT
     Route: 047
     Dates: start: 20050329

REACTIONS (3)
  - Headache [Unknown]
  - Lacrimation increased [Recovered/Resolved]
  - Eye irritation [Not Recovered/Not Resolved]
